FAERS Safety Report 12572935 (Version 2)
Quarter: 2016Q3

REPORT INFORMATION
  Report Type: Spontaneous
  Country: IT (occurrence: IT)
  Receive Date: 20160720
  Receipt Date: 20160801
  Transmission Date: 20161109
  Serious: Yes (Other)
  Sender: FDA-Public Use
  Company Number: IT-ACCORD-042358

PATIENT
  Age: 67 Year
  Sex: Male
  Weight: 74 kg

DRUGS (6)
  1. ABRAXANE [Suspect]
     Active Substance: PACLITAXEL
     Indication: PANCREATIC CARCINOMA
     Route: 042
     Dates: start: 20160122
  2. INSULIN [Concomitant]
     Active Substance: INSULIN NOS
  3. ADALAT [Concomitant]
     Active Substance: NIFEDIPINE
  4. FLUXUM [Concomitant]
     Active Substance: PARNAPARIN SODIUM
  5. TARGIN [Concomitant]
     Active Substance: NALOXONE HYDROCHLORIDE\OXYCODONE HYDROCHLORIDE
  6. GEMCITABINE/GEMCITABINE HYDROCHLORIDE [Suspect]
     Active Substance: GEMCITABINE\GEMCITABINE HYDROCHLORIDE
     Indication: PANCREATIC CARCINOMA
     Route: 042
     Dates: start: 20160122

REACTIONS (10)
  - Asthenia [Unknown]
  - Confusional state [Unknown]
  - Amnesia [Unknown]
  - Constipation [Recovering/Resolving]
  - Abdominal pain upper [Recovering/Resolving]
  - Blindness [Not Recovered/Not Resolved]
  - Neutropenia [Recovering/Resolving]
  - Headache [Not Recovered/Not Resolved]
  - Pyrexia [Recovering/Resolving]
  - Thrombocytopenia [Recovering/Resolving]

NARRATIVE: CASE EVENT DATE: 20160129
